FAERS Safety Report 13073447 (Version 1)
Quarter: 2016Q4

REPORT INFORMATION
  Report Type: Spontaneous
  Country: US (occurrence: US)
  Receive Date: 20161229
  Receipt Date: 20161229
  Transmission Date: 20170207
  Serious: Yes (Disabling, Other)
  Sender: FDA-Public Use
  Company Number: US-ELI_LILLY_AND_COMPANY-US201612009330

PATIENT
  Sex: Male

DRUGS (6)
  1. TOPAMAX [Concomitant]
     Active Substance: TOPIRAMATE
     Indication: PRODUCT USED FOR UNKNOWN INDICATION
     Dosage: UNK, UNKNOWN
     Route: 065
  2. ZYPREXA [Suspect]
     Active Substance: OLANZAPINE
     Indication: BIPOLAR DISORDER
     Dosage: UNK, UNKNOWN
     Route: 065
  3. ARTANE [Concomitant]
     Active Substance: TRIHEXYPHENIDYL HYDROCHLORIDE
     Indication: SALIVARY HYPERSECRETION
     Dosage: UNK, UNKNOWN
     Route: 065
  4. DOCUSATE SODIUM. [Concomitant]
     Active Substance: DOCUSATE SODIUM
     Indication: CONSTIPATION
     Dosage: 400 MG, UNKNOWN
     Route: 065
  5. VITAMIN D                          /00107901/ [Concomitant]
     Active Substance: ERGOCALCIFEROL
     Indication: PRODUCT USED FOR UNKNOWN INDICATION
     Dosage: UNK, UNKNOWN
     Route: 065
  6. ACIPHEX [Concomitant]
     Active Substance: RABEPRAZOLE SODIUM
     Indication: GASTROINTESTINAL DISORDER
     Dosage: 40 MG, UNKNOWN
     Route: 065

REACTIONS (6)
  - Weight decreased [Unknown]
  - Memory impairment [Unknown]
  - Dystonia [Not Recovered/Not Resolved]
  - Joint lock [Unknown]
  - Mental disorder [Unknown]
  - Hypokinesia [Recovered/Resolved]

NARRATIVE: CASE EVENT DATE: 1997
